FAERS Safety Report 8429744-1 (Version None)
Quarter: 2012Q2

REPORT INFORMATION
  Report Type: 
  Country: None (occurrence: None)
  Receive Date: 20120612
  Receipt Date: 20120611
  Transmission Date: 20120825
  Serious: Yes (Hospitalization)
  Sender: FDA-Public Use
  Company Number: FR-AMGEN-FRASP2012035900

PATIENT
  Age: 42 Year
  Sex: Male
  Weight: 70 kg

DRUGS (1)
  1. NEULASTA [Suspect]
     Dosage: 6 MG, ONE TIME DOSE
     Route: 042
     Dates: start: 20120516, end: 20120516

REACTIONS (5)
  - SHOCK [None]
  - BRADYCARDIA [None]
  - CHEST PAIN [None]
  - HYPERHIDROSIS [None]
  - HYPOTHERMIA [None]
